FAERS Safety Report 5766210-6 (Version None)
Quarter: 2008Q2

REPORT INFORMATION
  Report Type: 
  Country: None (occurrence: None)
  Receive Date: 20080611
  Receipt Date: 20080603
  Transmission Date: 20081010
  Serious: Yes (Other)
  Sender: FDA-Public Use
  Company Number: US-WYE-H03525508

PATIENT
  Sex: Female
  Weight: 62.2 kg

DRUGS (14)
  1. PREMARIN [Suspect]
     Indication: MENOPAUSAL SYMPTOMS
     Route: 048
     Dates: start: 19930101, end: 19940101
  2. CALCIUM [Concomitant]
     Indication: MEDICAL DIET
  3. NORGESIC FORTE [Concomitant]
  4. MENEST [Suspect]
     Dosage: 0.625MG
     Route: 048
     Dates: start: 19980501, end: 19980601
  5. ASPIRIN [Concomitant]
  6. ESTRADERM [Suspect]
     Dosage: 0.05MG PATCH
     Route: 062
     Dates: start: 19950101, end: 19960301
  7. ESTRADERM [Suspect]
     Dosage: PATCH
     Route: 062
     Dates: start: 19981001, end: 19981001
  8. ESTRADERM [Suspect]
     Dosage: 0.05MG PATCH
     Route: 062
     Dates: start: 19980316, end: 19980501
  9. ESTROGEN NOS [Suspect]
     Dosage: PATCH
     Route: 062
     Dates: start: 19940112, end: 19950101
  10. CLIMARA [Suspect]
     Dosage: 12.5MG PATCH
     Route: 062
     Dates: start: 19960301, end: 19980301
  11. CLIMARA [Suspect]
     Dosage: PATCH
     Route: 062
     Dates: start: 19980701, end: 19981001
  12. CLIMARA [Suspect]
     Dosage: PATCH
     Route: 062
     Dates: start: 19981028
  13. PROVERA [Concomitant]
     Route: 048
  14. VITAMINS NOS [Concomitant]

REACTIONS (1)
  - BREAST CANCER METASTATIC [None]
